FAERS Safety Report 22843002 (Version 4)
Quarter: 2023Q4

REPORT INFORMATION
  Report Type: Report from Study
  Country: US (occurrence: US)
  Receive Date: 20230821
  Receipt Date: 20231025
  Transmission Date: 20240110
  Serious: Yes (Other)
  Sender: FDA-Public Use
  Company Number: US-ABBVIE-5370106

PATIENT
  Sex: Female
  Weight: 63.956 kg

DRUGS (5)
  1. RINVOQ [Suspect]
     Active Substance: UPADACITINIB
     Indication: Crohn^s disease
     Dosage: FORM STRENGTH 30 MILLIGRAM
     Route: 048
     Dates: start: 20230512
  2. ELIQUIS [Concomitant]
     Active Substance: APIXABAN
     Indication: Anticoagulant therapy
  3. OMEPRAZOLE [Concomitant]
     Active Substance: OMEPRAZOLE
     Indication: Gastrooesophageal reflux disease
  4. FERROUS SULFATE [Concomitant]
     Active Substance: FERROUS SULFATE
     Indication: Product used for unknown indication
  5. VITAMIN D [Concomitant]
     Active Substance: VITAMIN D NOS
     Indication: Product used for unknown indication

REACTIONS (14)
  - Neoplasm malignant [Unknown]
  - Burning sensation [Not Recovered/Not Resolved]
  - Balance disorder [Not Recovered/Not Resolved]
  - Skin exfoliation [Not Recovered/Not Resolved]
  - Swelling [Unknown]
  - Joint swelling [Unknown]
  - Dry skin [Not Recovered/Not Resolved]
  - Weight increased [Unknown]
  - Paranasal sinus hypersecretion [Unknown]
  - Muscle rupture [Recovering/Resolving]
  - Rash [Not Recovered/Not Resolved]
  - Peripheral swelling [Unknown]
  - Muscle strain [Unknown]
  - Infection [Unknown]

NARRATIVE: CASE EVENT DATE: 20230101
